FAERS Safety Report 4301638-2 (Version None)
Quarter: 2004Q1

REPORT INFORMATION
  Report Type: 
  Country: None (occurrence: None)
  Receive Date: 20040223
  Receipt Date: 20040219
  Transmission Date: 20041129
  Serious: Yes (Other)
  Sender: FDA-Public Use
  Company Number: US-BRISTOL-MYERS SQUIBB COMPANY-12510640

PATIENT
  Sex: Female

DRUGS (1)
  1. COUMADIN [Suspect]
     Route: 048

REACTIONS (3)
  - MASTECTOMY [None]
  - RENAL DISORDER [None]
  - SKIN NECROSIS [None]
